FAERS Safety Report 7015855-4 (Version None)
Quarter: 2010Q3

REPORT INFORMATION
  Report Type: 
  Country: None (occurrence: None)
  Receive Date: 20100927
  Receipt Date: 20100630
  Transmission Date: 20110219
  Serious: No
  Sender: FDA-Public Use
  Company Number: US-ASTRAZENECA-2010SE27150

PATIENT
  Age: 67 Year
  Sex: Female

DRUGS (3)
  1. ARIMIDEX [Suspect]
     Indication: BREAST CANCER
     Route: 048
  2. SYMBICORT [Concomitant]
  3. COMBIVENT [Concomitant]

REACTIONS (3)
  - GENERAL SYMPTOM [None]
  - SEXUAL DYSFUNCTION [None]
  - URINARY INCONTINENCE [None]
